FAERS Safety Report 8597890-8 (Version None)
Quarter: 2012Q3

REPORT INFORMATION
  Report Type: 
  Country: None (occurrence: None)
  Receive Date: 20120816
  Receipt Date: 20120813
  Transmission Date: 20120928
  Serious: No
  Sender: FDA-Public Use
  Company Number: US-TEVA-353524USA

PATIENT
  Sex: Female
  Weight: 63.56 kg

DRUGS (2)
  1. SINGULAIR [Concomitant]
  2. NUVIGIL [Suspect]
     Indication: NARCOLEPSY
     Route: 048

REACTIONS (1)
  - DRUG INEFFECTIVE [None]
